FAERS Safety Report 11970556 (Version 1)
Quarter: 2016Q1

REPORT INFORMATION
  Report Type: Spontaneous
  Country: None (occurrence: None)
  Receive Date: 20160127
  Receipt Date: 20160127
  Transmission Date: 20160526
  Serious: Yes (Hospitalization)
  Sender: FDA-Public Use
  Company Number: None

PATIENT
  Age: 57 Year
  Sex: Female
  Weight: 67 kg

DRUGS (14)
  1. DALFAMPRIDINE 30 MG [Suspect]
     Active Substance: DALFAMPRIDINE
     Indication: MULTIPLE SCLEROSIS
     Route: 048
  2. FLUOXETINE [Concomitant]
     Active Substance: FLUOXETINE HYDROCHLORIDE
  3. KETOROLAC [Concomitant]
     Active Substance: KETOROLAC\KETOROLAC TROMETHAMINE
  4. DICYCLOMINE [Concomitant]
     Active Substance: DICYCLOMINE HYDROCHLORIDE
  5. CHOLECALCIFEROL [Concomitant]
     Active Substance: CHOLECALCIFEROL
  6. LEVETIRACETAM. [Concomitant]
     Active Substance: LEVETIRACETAM
  7. LIDOCAINE TOPICAL PATCH [Concomitant]
  8. TRIMETHOBENZAMIDE [Concomitant]
     Active Substance: TRIMETHOBENZAMIDE
  9. SOLIFENACIN [Concomitant]
     Active Substance: SOLIFENACIN
  10. POTASSIUM CHLORIDE. [Concomitant]
     Active Substance: POTASSIUM CHLORIDE
  11. MONTELUKAST [Concomitant]
     Active Substance: MONTELUKAST SODIUM
  12. ACETAMINOPHEN. [Concomitant]
     Active Substance: ACETAMINOPHEN
  13. BUPROPRION [Concomitant]
     Active Substance: BUPROPION
  14. ROTIGOTINE [Concomitant]
     Active Substance: ROTIGOTINE

REACTIONS (3)
  - Muscular weakness [None]
  - Acute kidney injury [None]
  - Asthenia [None]

NARRATIVE: CASE EVENT DATE: 20151201
